FAERS Safety Report 4821395-0 (Version None)
Quarter: 2005Q4

REPORT INFORMATION
  Report Type: 
  Country: None (occurrence: None)
  Receive Date: 20051107
  Receipt Date: 20051026
  Transmission Date: 20060501
  Serious: Yes (Life-Threatening, Hospitalization, Disabling)
  Sender: FDA-Public Use
  Company Number: US-JNJFOC-20050605428

PATIENT
  Age: 39 Year
  Sex: Female

DRUGS (7)
  1. REMICADE [Suspect]
     Route: 042
  2. STEROIDS [Concomitant]
  3. IMURAN [Concomitant]
  4. HYDROCORTISONE [Concomitant]
  5. TPN [Concomitant]
  6. TPN [Concomitant]
  7. TPN [Concomitant]

REACTIONS (5)
  - CANDIDA SEPSIS [None]
  - CARDIOMYOPATHY [None]
  - CROHN'S DISEASE [None]
  - DISSEMINATED INTRAVASCULAR COAGULATION [None]
  - MULTI-ORGAN FAILURE [None]
